FAERS Safety Report 18119253 (Version 1)
Quarter: 2020Q3

REPORT INFORMATION
  Report Type: Spontaneous
  Country: US (occurrence: US)
  Receive Date: 20200806
  Receipt Date: 20200806
  Transmission Date: 20201103
  Serious: No
  Sender: FDA-Public Use
  Company Number: None

PATIENT
  Age: 38 Year
  Sex: Female
  Weight: 64.35 kg

DRUGS (1)
  1. OXYCODONE/ACETAMINOPHEN [Suspect]
     Active Substance: ACETAMINOPHEN\OXYCODONE HYDROCHLORIDE
     Indication: PROCEDURAL PAIN
     Dosage: ?          QUANTITY:1 TABLET(S);?
     Route: 048
     Dates: start: 20200727, end: 20200730

REACTIONS (8)
  - Therapeutic product effect variable [None]
  - Tremor [None]
  - Dizziness [None]
  - Nausea [None]
  - Anxiety [None]
  - Somnolence [None]
  - Adverse drug reaction [None]
  - Hypervigilance [None]

NARRATIVE: CASE EVENT DATE: 20200730
